FAERS Safety Report 13915349 (Version 3)
Quarter: 2019Q2

REPORT INFORMATION
  Report Type: Spontaneous
  Country: US (occurrence: US)
  Receive Date: 20170829
  Receipt Date: 20190515
  Transmission Date: 20190711
  Serious: Yes (Hospitalization, Other)
  Sender: FDA-Public Use
  Company Number: US-AUROBINDO-AUR-APL-2017-39564

PATIENT

DRUGS (4)
  1. TACROLIMUS. [Suspect]
     Active Substance: TACROLIMUS
     Dosage: 1 MG, ONCE A DAYEVERY EVENING
     Route: 048
  2. MYCOPHENOLATE MOFETIL. [Suspect]
     Active Substance: MYCOPHENOLATE MOFETIL
     Indication: IMMUNOSUPPRESSANT DRUG THERAPY
     Dosage: 500 MG, TWO TIMES A DAY
     Route: 048
  3. TACROLIMUS. [Suspect]
     Active Substance: TACROLIMUS
     Indication: IMMUNOSUPPRESSANT DRUG THERAPY
     Dosage: 0.5 MG, ONCE A DAY EVERY MORNING
     Route: 048
  4. PREDNISONE. [Suspect]
     Active Substance: PREDNISONE
     Indication: IMMUNOSUPPRESSANT DRUG THERAPY
     Dosage: 5 MILLIGRAM, DAILY
     Route: 048

REACTIONS (26)
  - Pyuria [Recovered/Resolved]
  - Skin turgor decreased [Recovered/Resolved]
  - Blood urea increased [Unknown]
  - Babesiosis [Recovered/Resolved]
  - Haptoglobin decreased [Recovered/Resolved]
  - Lethargy [Recovered/Resolved]
  - Respiratory rate increased [Recovered/Resolved]
  - Blood chloride decreased [Unknown]
  - Aspartate aminotransferase increased [Recovered/Resolved]
  - Blood pressure decreased [Recovered/Resolved]
  - Fatigue [Recovered/Resolved]
  - Sepsis [Recovered/Resolved]
  - Haemoglobin decreased [Recovered/Resolved]
  - Haemolytic anaemia [Recovered/Resolved]
  - Acute kidney injury [Unknown]
  - Blood lactate dehydrogenase increased [Recovered/Resolved]
  - Decreased appetite [Recovered/Resolved]
  - Pyrexia [Recovered/Resolved]
  - Blood creatinine increased [Unknown]
  - Blood sodium decreased [Unknown]
  - Myalgia [Recovered/Resolved]
  - Heart rate increased [Recovered/Resolved]
  - Platelet count decreased [Recovered/Resolved]
  - Mucosal dryness [Recovered/Resolved]
  - Alanine aminotransferase increased [Recovered/Resolved]
  - Haematocrit decreased [Recovered/Resolved]

NARRATIVE: CASE EVENT DATE: 2013
